FAERS Safety Report 6367652-0 (Version None)
Quarter: 2009Q3

REPORT INFORMATION
  Report Type: 
  Country: None (occurrence: None)
  Receive Date: 20090908
  Receipt Date: 20090604
  Transmission Date: 20100115
  Serious: Yes (Other)
  Sender: FDA-Public Use
  Company Number: PAR_03023_2009

PATIENT
  Age: 27 Year
  Sex: Male
  Weight: 60.782 kg

DRUGS (1)
  1. MEGACE ES [Suspect]
     Indication: WEIGHT DECREASED
     Dosage: (625 MG ORAL)
     Route: 048
     Dates: start: 20090401, end: 20090515

REACTIONS (1)
  - CUSHING'S SYNDROME [None]
